FAERS Safety Report 17209544 (Version 4)
Quarter: 2020Q1

REPORT INFORMATION
  Report Type: Spontaneous
  Country: US (occurrence: US)
  Receive Date: 20191227
  Receipt Date: 20200121
  Transmission Date: 20200409
  Serious: No
  Sender: FDA-Public Use
  Company Number: US-009507513-1912USA011642

PATIENT
  Age: 22 Year
  Sex: Female
  Weight: 50.79 kg

DRUGS (1)
  1. NEXPLANON [Suspect]
     Active Substance: ETONOGESTREL
     Dosage: IMPLANT
     Route: 059
     Dates: start: 20191211

REACTIONS (6)
  - Fall [Unknown]
  - Implant site warmth [Unknown]
  - Medical device site discomfort [Unknown]
  - Implant site erythema [Unknown]
  - Implant site pain [Unknown]
  - Implant site haematoma [Recovered/Resolved]

NARRATIVE: CASE EVENT DATE: 201912
